FAERS Safety Report 16168580 (Version 1)
Quarter: 2019Q2

REPORT INFORMATION
  Report Type: Spontaneous
  Country: US (occurrence: US)
  Receive Date: 20190408
  Receipt Date: 20190408
  Transmission Date: 20190711
  Serious: No
  Sender: FDA-Public Use
  Company Number: US-BIOGEN-2019BI00709039

PATIENT
  Sex: Female

DRUGS (3)
  1. OMEPRAZOLE. [Concomitant]
     Active Substance: OMEPRAZOLE
     Route: 065
  2. TECFIDERA [Suspect]
     Active Substance: DIMETHYL FUMARATE
     Indication: MULTIPLE SCLEROSIS
     Dosage: TOOK FOR 7 DAYS
     Route: 048
     Dates: start: 20190306
  3. TECFIDERA [Suspect]
     Active Substance: DIMETHYL FUMARATE
     Dosage: STARTED AFTER TAKING TECFIDERA 120 MG BID FOR ONE WEEK
     Route: 065

REACTIONS (6)
  - Hot flush [Not Recovered/Not Resolved]
  - Flushing [Not Recovered/Not Resolved]
  - Gastrooesophageal reflux disease [Not Recovered/Not Resolved]
  - Paraesthesia [Unknown]
  - Nausea [Recovered/Resolved]
  - Abdominal pain upper [Recovered/Resolved]
